FAERS Safety Report 23124674 (Version 2)
Quarter: 2023Q4

REPORT INFORMATION
  Report Type: Report from Study
  Country: TW (occurrence: TW)
  Receive Date: 20231030
  Receipt Date: 20231110
  Transmission Date: 20240109
  Serious: Yes (Hospitalization)
  Sender: FDA-Public Use
  Company Number: TW-PFIZER INC-202300304253

PATIENT
  Age: 62 Year
  Sex: Female
  Weight: 61.6 kg

DRUGS (1)
  1. ELRANATAMAB [Suspect]
     Active Substance: ELRANATAMAB
     Indication: Plasma cell myeloma
     Dosage: 76 MG, EVERY 2 WEEKS
     Route: 058
     Dates: start: 20230704, end: 20230914

REACTIONS (1)
  - Salmonellosis [Recovered/Resolved]

NARRATIVE: CASE EVENT DATE: 20230919
